FAERS Safety Report 16444403 (Version 1)
Quarter: 2019Q2

REPORT INFORMATION
  Report Type: Report from Study
  Country: US (occurrence: US)
  Receive Date: 20190618
  Receipt Date: 20190618
  Transmission Date: 20190711
  Serious: Yes (Other)
  Sender: FDA-Public Use
  Company Number: US-GILEAD-2019-0404951

PATIENT
  Age: 64 Year
  Sex: Female

DRUGS (1)
  1. AMBRISENTAN [Suspect]
     Active Substance: AMBRISENTAN
     Indication: PRODUCT USED FOR UNKNOWN INDICATION
     Dosage: 5 MG, QD
     Route: 065
     Dates: start: 20181224

REACTIONS (8)
  - Polyuria [Not Recovered/Not Resolved]
  - Oxygen saturation decreased [Unknown]
  - Palpitations [Unknown]
  - Dizziness [Unknown]
  - Dehydration [Not Recovered/Not Resolved]
  - Insomnia [Unknown]
  - Fluid retention [Unknown]
  - Headache [Unknown]
